FAERS Safety Report 14988833 (Version 1)
Quarter: 2018Q2

REPORT INFORMATION
  Report Type: Spontaneous
  Country: GB (occurrence: GB)
  Receive Date: 20180608
  Receipt Date: 20180608
  Transmission Date: 20180711
  Serious: Yes (Other)
  Sender: FDA-Public Use
  Company Number: GB-PFIZER INC-2018226133

PATIENT
  Age: 31 Year
  Sex: Male

DRUGS (1)
  1. VIAGRA [Suspect]
     Active Substance: SILDENAFIL CITRATE
     Dosage: UNK

REACTIONS (5)
  - Penile pain [Unknown]
  - Painful erection [Recovered/Resolved]
  - Erection increased [Recovered/Resolved]
  - Penis disorder [Recovered/Resolved]
  - Intentional product misuse [Unknown]
